FAERS Safety Report 7779383-0 (Version None)
Quarter: 2011Q3

REPORT INFORMATION
  Report Type: 
  Country: None (occurrence: None)
  Receive Date: 20110927
  Receipt Date: 20110916
  Transmission Date: 20111222
  Serious: Yes (Hospitalization)
  Sender: FDA-Public Use
  Company Number: US-BIOGENIDEC-2011BI033095

PATIENT
  Sex: Female

DRUGS (2)
  1. AVONEX [Suspect]
     Indication: MULTIPLE SCLEROSIS
     Route: 030
     Dates: start: 20100520
  2. AVONEX [Suspect]
     Route: 030
     Dates: start: 19990901, end: 20051205

REACTIONS (9)
  - PANCREATIC CYST [None]
  - URINARY TRACT INFECTION [None]
  - APHAGIA [None]
  - MULTIPLE SCLEROSIS RELAPSE [None]
  - PNEUMONIA [None]
  - SEPSIS [None]
  - CHOLELITHIASIS [None]
  - PANCREATITIS [None]
  - DECUBITUS ULCER [None]
